FAERS Safety Report 9729785 (Version 2)
Quarter: 2015Q3

REPORT INFORMATION
  Report Type: Spontaneous
  Country: US (occurrence: US)
  Receive Date: 20131204
  Receipt Date: 20150804
  Transmission Date: 20151125
  Serious: No
  Sender: FDA-Public Use
  Company Number: US-GILEAD-2009-0022476

PATIENT
  Age: 74 Year
  Sex: Female
  Weight: 84.37 kg

DRUGS (13)
  1. CARBIDOPA-LEVO [Concomitant]
     Active Substance: CARBIDOPA\LEVODOPA
  2. EVISTA [Concomitant]
     Active Substance: RALOXIFENE HYDROCHLORIDE
  3. SPIRONOLACTONE. [Concomitant]
     Active Substance: SPIRONOLACTONE
  4. FUROSEMIDE. [Concomitant]
     Active Substance: FUROSEMIDE
  5. ADVIL [Concomitant]
     Active Substance: IBUPROFEN
  6. SOTALOL. [Concomitant]
     Active Substance: SOTALOL
  7. METOLAZONE. [Concomitant]
     Active Substance: METOLAZONE
  8. LETAIRIS [Suspect]
     Active Substance: AMBRISENTAN
     Indication: PULMONARY ARTERIAL HYPERTENSION
     Route: 048
     Dates: start: 20090121
  9. CRESTOR [Concomitant]
     Active Substance: ROSUVASTATIN CALCIUM
  10. CELEBREX [Concomitant]
     Active Substance: CELECOXIB
  11. POTASSIUM [Concomitant]
     Active Substance: POTASSIUM
  12. AMLODIPINE [Concomitant]
     Active Substance: AMLODIPINE BESYLATE
  13. MAGNESIUM OXIDE. [Concomitant]
     Active Substance: MAGNESIUM OXIDE

REACTIONS (1)
  - Dry mouth [Unknown]
